FAERS Safety Report 24052866 (Version 2)
Quarter: 2024Q3

REPORT INFORMATION
  Report Type: Spontaneous
  Country: DE (occurrence: DE)
  Receive Date: 20240705
  Receipt Date: 20240830
  Transmission Date: 20241016
  Serious: Yes (Other)
  Sender: ROCHE
  Company Number: DE-002147023-NVSC2024DE132258

PATIENT
  Age: 52 Year
  Sex: Female
  Weight: 67 kg

DRUGS (1)
  1. XOLAIR [Suspect]
     Active Substance: OMALIZUMAB
     Indication: Urticaria chronic
     Dosage: 300 MG, QW4
     Route: 058

REACTIONS (4)
  - Psoriatic arthropathy [Unknown]
  - Vertigo [Unknown]
  - Vitiligo [Unknown]
  - Psoriasis [Unknown]

NARRATIVE: CASE EVENT DATE: 20240301
